FAERS Safety Report 8604979-3 (Version None)
Quarter: 2012Q3

REPORT INFORMATION
  Report Type: 
  Country: None (occurrence: None)
  Receive Date: 20120820
  Receipt Date: 20120810
  Transmission Date: 20120928
  Serious: Yes (Hospitalization)
  Sender: FDA-Public Use
  Company Number: GB-SANOFI-AVENTIS-2012SA058476

PATIENT
  Age: 68 Year
  Sex: Female

DRUGS (9)
  1. MORPHINE [Concomitant]
     Route: 048
  2. ACETAMINOPHEN [Concomitant]
     Route: 048
  3. ANALGESICS [Concomitant]
     Route: 003
  4. CABAZITAXEL [Suspect]
     Indication: ADENOCARCINOMA OF THE CERVIX
     Route: 041
     Dates: start: 20120713, end: 20120713
  5. OMEPRAZOLE [Concomitant]
     Route: 048
  6. ORAMORPH SR [Concomitant]
     Route: 048
  7. CABAZITAXEL [Suspect]
     Route: 041
     Dates: start: 20120803, end: 20120803
  8. DEXAMETHASONE [Concomitant]
     Route: 048
  9. ENOXAPARIN SODIUM [Concomitant]
     Route: 058

REACTIONS (1)
  - ABDOMINAL DISTENSION [None]
